FAERS Safety Report 19175112 (Version 1)
Quarter: 2021Q2

REPORT INFORMATION
  Report Type: Spontaneous
  Country: PT (occurrence: PT)
  Receive Date: 20210423
  Receipt Date: 20210423
  Transmission Date: 20210717
  Serious: Yes (Other)
  Sender: FDA-Public Use
  Company Number: PT-JNJFOC-20210432658

PATIENT
  Age: 75 Year
  Sex: Male

DRUGS (6)
  1. RAMIPRIL. [Concomitant]
     Active Substance: RAMIPRIL
  2. BECLOMETASONE [Concomitant]
     Active Substance: BECLOMETHASONE DIPROPIONATE
  3. PREZISTA [Suspect]
     Active Substance: DARUNAVIR ETHANOLATE
     Indication: HIV INFECTION
     Route: 065
     Dates: start: 201703
  4. RITONAVIR. [Suspect]
     Active Substance: RITONAVIR
     Indication: HIV INFECTION
     Route: 065
     Dates: start: 201703
  5. ALLOPURINOL. [Concomitant]
     Active Substance: ALLOPURINOL
  6. TIOTROPIUM BROMIDE [Concomitant]
     Active Substance: TIOTROPIUM BROMIDE

REACTIONS (6)
  - Diarrhoea [Unknown]
  - Renal impairment [Unknown]
  - Liver injury [Unknown]
  - Chronic kidney disease [Unknown]
  - Jaundice [Unknown]
  - Pneumonia [Unknown]

NARRATIVE: CASE EVENT DATE: 201703
